FAERS Safety Report 4810806-2 (Version None)
Quarter: 2005Q4

REPORT INFORMATION
  Report Type: 
  Country: None (occurrence: None)
  Receive Date: 20051024
  Receipt Date: 20051012
  Transmission Date: 20060501
  Serious: No
  Sender: FDA-Public Use
  Company Number: 2005130959

PATIENT
  Age: 68 Year
  Sex: Female
  Weight: 68.0396 kg

DRUGS (7)
  1. ZANTAC 150 [Suspect]
     Indication: GASTROOESOPHAGEAL REFLUX DISEASE
     Dosage: 1 TABLET ONE TIME, ORAL
     Route: 048
     Dates: start: 20050919, end: 20050919
  2. FLUOXETINE HCL [Concomitant]
  3. LEVOTHYROXINE SODIUM [Concomitant]
  4. FEXOFENADINE HYDROCHLORIDE [Concomitant]
  5. MONTELUKAST SODIUM (MONTELUKAST SODIUM) [Concomitant]
  6. NAPROXEN [Concomitant]
  7. FAMOTIDINE [Concomitant]

REACTIONS (6)
  - NAUSEA [None]
  - PHARYNGEAL OEDEMA [None]
  - PRURITUS GENERALISED [None]
  - RESTLESS LEGS SYNDROME [None]
  - RHINORRHOEA [None]
  - URTICARIA [None]
